FAERS Safety Report 8597221-3 (Version None)
Quarter: 2012Q3

REPORT INFORMATION
  Report Type: 
  Country: None (occurrence: None)
  Receive Date: 20120816
  Receipt Date: 20120808
  Transmission Date: 20120928
  Serious: No
  Sender: FDA-Public Use
  Company Number: US-BIOGENIDEC-2012BI031023

PATIENT
  Sex: Female

DRUGS (1)
  1. TYSABRI [Suspect]
     Indication: MULTIPLE SCLEROSIS
     Route: 042
     Dates: start: 20110607

REACTIONS (6)
  - UPPER LIMB FRACTURE [None]
  - PAIN [None]
  - FALL [None]
  - BLOOD TESTOSTERONE DECREASED [None]
  - EXCORIATION [None]
  - BLISTER [None]
